FAERS Safety Report 13744545 (Version 1)
Quarter: 2017Q3

REPORT INFORMATION
  Report Type: Spontaneous
  Country: CA (occurrence: CA)
  Receive Date: 20170712
  Receipt Date: 20170712
  Transmission Date: 20171127
  Serious: Yes (Other)
  Sender: FDA-Public Use
  Company Number: CA-BAXTER-2017BAX027024

PATIENT
  Age: 21 Month
  Sex: Female
  Weight: 10 kg

DRUGS (26)
  1. PROPOFOL. [Concomitant]
     Active Substance: PROPOFOL
     Indication: INDUCTION OF ANAESTHESIA
     Route: 065
  2. ROCURONIUM [Concomitant]
     Active Substance: ROCURONIUM BROMIDE
     Indication: INDUCTION OF ANAESTHESIA
     Route: 065
  3. SEVOFLURANE. [Concomitant]
     Active Substance: SEVOFLURANE
     Indication: GENERAL ANAESTHESIA
     Dosage: LESS THAN 10 MINUTES
     Route: 055
  4. VALPROIC ACID. [Concomitant]
     Active Substance: VALPROIC ACID
     Indication: CONVULSION NEONATAL
     Route: 065
  5. FENTANYL. [Concomitant]
     Active Substance: FENTANYL
     Indication: HYPOTONIA
     Route: 065
  6. SEVOFLURANE. [Concomitant]
     Active Substance: SEVOFLURANE
     Indication: MAINTENANCE OF ANAESTHESIA
     Route: 055
  7. SODIUM CHLORIDE. [Concomitant]
     Active Substance: SODIUM CHLORIDE
     Indication: PRODUCT USED FOR UNKNOWN INDICATION
     Route: 065
  8. BICARBONATE CONCENTRATION D17000 [Suspect]
     Active Substance: SODIUM BICARBONATE
     Dosage: LARGE DOSE
     Route: 065
  9. PROPOFOL. [Concomitant]
     Active Substance: PROPOFOL
     Indication: GENERAL ANAESTHESIA
     Route: 065
  10. LEVETIRACETAM. [Concomitant]
     Active Substance: LEVETIRACETAM
     Indication: CONVULSION NEONATAL
     Route: 065
  11. SUCCINYLCHOLINE [Concomitant]
     Active Substance: SUCCINYLCHOLINE
     Indication: GENERAL ANAESTHESIA
     Route: 065
  12. EPINEPHRINE. [Concomitant]
     Active Substance: EPINEPHRINE
     Dosage: SECOND DOSE
     Route: 065
  13. ROCURONIUM [Concomitant]
     Active Substance: ROCURONIUM BROMIDE
     Indication: HYPOTONIA
     Route: 065
  14. GLYCOPYRROLATE. [Concomitant]
     Active Substance: GLYCOPYRROLATE
     Indication: PRODUCT USED FOR UNKNOWN INDICATION
     Route: 065
  15. PROPOFOL. [Concomitant]
     Active Substance: PROPOFOL
     Indication: MAINTENANCE OF ANAESTHESIA
     Route: 065
  16. NEOSTIGMINE [Concomitant]
     Active Substance: NEOSTIGMINE
     Indication: PRODUCT USED FOR UNKNOWN INDICATION
     Route: 065
  17. EPINEPHRINE. [Concomitant]
     Active Substance: EPINEPHRINE
     Indication: CARDIAC ARREST
     Dosage: A SECOND DOSE IS ALSO GIVEN VIA ETT
     Route: 042
  18. PROPOFOL. [Concomitant]
     Active Substance: PROPOFOL
     Indication: HYPOTONIA
     Route: 042
  19. REMIFENTANIL [Concomitant]
     Active Substance: REMIFENTANIL
     Indication: MAINTENANCE OF ANAESTHESIA
     Route: 065
  20. DEXTROSE. [Concomitant]
     Active Substance: DEXTROSE
     Indication: PRODUCT USED FOR UNKNOWN INDICATION
     Route: 065
  21. BICARBONATE CONCENTRATION D17000 [Suspect]
     Active Substance: SODIUM BICARBONATE
     Indication: CARDIAC ARREST
     Route: 065
  22. FENTANYL. [Concomitant]
     Active Substance: FENTANYL
     Indication: INDUCTION OF ANAESTHESIA
     Route: 042
  23. FENTANYL. [Concomitant]
     Active Substance: FENTANYL
     Indication: PRODUCT USED FOR UNKNOWN INDICATION
     Route: 065
  24. KETAMINE [Concomitant]
     Active Substance: KETAMINE
     Indication: GENERAL ANAESTHESIA
     Route: 042
  25. ATROPINE. [Concomitant]
     Active Substance: ATROPINE
     Indication: BRADYCARDIA
     Route: 065
  26. CALCIUM CHLORIDE. [Concomitant]
     Active Substance: CALCIUM CHLORIDE
     Indication: CARDIAC ARREST
     Route: 065

REACTIONS (3)
  - Blood gases abnormal [Recovering/Resolving]
  - Electrolyte imbalance [Recovering/Resolving]
  - Accidental overdose [Unknown]
